FAERS Safety Report 7091537-8 (Version None)
Quarter: 2010Q4

REPORT INFORMATION
  Report Type: 
  Country: None (occurrence: None)
  Receive Date: 20101109
  Receipt Date: 20101029
  Transmission Date: 20110411
  Serious: No
  Sender: FDA-Public Use
  Company Number: JP-PFIZER INC-2010110368

PATIENT
  Age: 29 Year
  Sex: Male
  Weight: 98 kg

DRUGS (1)
  1. CHAMPIX [Suspect]
     Dosage: 1 MG, 2X/DAY
     Route: 048
     Dates: start: 20100713

REACTIONS (3)
  - OROPHARYNGEAL PAIN [None]
  - PRODUCTIVE COUGH [None]
  - RHINORRHOEA [None]
